FAERS Safety Report 4299210-6 (Version None)
Quarter: 2004Q1

REPORT INFORMATION
  Report Type: 
  Country: None (occurrence: None)
  Receive Date: 20040217
  Receipt Date: 20040210
  Transmission Date: 20041129
  Serious: Yes (Other)
  Sender: FDA-Public Use
  Company Number: NSADSS2003020374

PATIENT
  Age: 32 Year
  Sex: Female
  Weight: 61.2356 kg

DRUGS (1)
  1. ORTHO EVRA [Suspect]
     Indication: CONTRACEPTION
     Dosage: 1, 3 IN 4 WEEK, TRANSDERMAL
     Route: 062
     Dates: start: 20030319

REACTIONS (7)
  - APPLICATION SITE DERMATITIS [None]
  - CHEST PAIN [None]
  - DERMATITIS CONTACT [None]
  - DYSPNOEA [None]
  - ORAL MUCOSAL BLISTERING [None]
  - PALPITATIONS [None]
  - SWELLING FACE [None]
